FAERS Safety Report 17660155 (Version 3)
Quarter: 2020Q4

REPORT INFORMATION
  Report Type: Spontaneous
  Country: US (occurrence: US)
  Receive Date: 20200413
  Receipt Date: 20201113
  Transmission Date: 20210113
  Serious: Yes (Other)
  Sender: FDA-Public Use
  Company Number: US-PFIZER INC-2019401118

PATIENT
  Age: 70 Year
  Sex: Male
  Weight: 77.11 kg

DRUGS (13)
  1. TIZANIDINE. [Concomitant]
     Active Substance: TIZANIDINE
     Indication: MUSCLE SPASMS
     Dosage: 8 MG, 3X/DAY [TWO 4MG TABLETS, BY MOUTH EVERY 8 HOURS]
     Route: 048
  2. CENTRUM SILVER +50 [Concomitant]
     Active Substance: MINERALS\VITAMINS
     Dosage: UNK, 1X/DAY
  3. VITAMIN D [COLECALCIFEROL] [Concomitant]
     Active Substance: CHOLECALCIFEROL
     Indication: VITAMIN SUPPLEMENTATION
     Dosage: 5000 IU, DAILY [5000IU, TABLET, BY MOUTH, ONCE DAILY]
     Route: 048
  4. DILANTIN [Suspect]
     Active Substance: PHENYTOIN
     Indication: EPILEPSY
     Dosage: 50 MG, 1X/DAY (ONCE IN THE MORNING)
     Route: 048
  5. DILANTIN [Suspect]
     Active Substance: PHENYTOIN
     Dosage: 100 MG, 3X/DAY
  6. PRAVASTATIN. [Concomitant]
     Active Substance: PRAVASTATIN
     Dosage: 200 MG, 1X/DAY
     Route: 048
  7. BISOPROLOL /HCTZ [Concomitant]
     Active Substance: BISOPROLOL FUMARATE\HYDROCHLOROTHIAZIDE
     Dosage: 2.56 MG, 1X/DAY
     Route: 048
  8. VITAMIN C [Concomitant]
     Active Substance: ASCORBIC ACID
     Indication: VITAMIN SUPPLEMENTATION
     Dosage: 100 MG, 1X/DAY
     Route: 048
  9. DILANTIN [Suspect]
     Active Substance: PHENYTOIN
     Dosage: 300 MG, DAILY (IN THE MORNING, AND TWO 100MG CAPSULES, AT NIGHT)
     Route: 048
  10. DILANTIN [Suspect]
     Active Substance: PHENYTOIN
     Indication: EPILEPSY
     Dosage: 100 MG, 4X/DAY
  11. CELECOXIB. [Concomitant]
     Active Substance: CELECOXIB
     Dosage: 200 MG, 1X/DAY
     Route: 048
  12. ALEVE [Concomitant]
     Active Substance: NAPROXEN SODIUM
     Indication: PAIN
     Dosage: 220 MG, 2X/DAY (ONCE IN THE MORNING AND ONCE AT NIGHT)
  13. FENOFIBRATE. [Concomitant]
     Active Substance: FENOFIBRATE
     Indication: INFREQUENT BOWEL MOVEMENTS
     Dosage: 160 MG, 1X/DAY
     Route: 048

REACTIONS (3)
  - Choking [Not Recovered/Not Resolved]
  - Sinusitis [Not Recovered/Not Resolved]
  - Cataract [Unknown]
